FAERS Safety Report 9017559 (Version 1)
Quarter: 2013Q1

REPORT INFORMATION
  Report Type: Report from Study
  Country: BE (occurrence: BE)
  Receive Date: 20130117
  Receipt Date: 20130117
  Transmission Date: 20140127
  Serious: Yes (Hospitalization)
  Sender: FDA-Public Use
  Company Number: BE-BAXTER-2013BAX000023

PATIENT
  Age: 63 Year
  Sex: Female

DRUGS (3)
  1. FEIBA [Suspect]
     Indication: FACTOR VIII DEFICIENCY
     Dosage: 6 VIALS
     Route: 052
     Dates: start: 20121218
  2. FEIBA [Suspect]
     Route: 051
     Dates: start: 20121229
  3. FEIBA [Suspect]
     Route: 051
     Dates: start: 20121230

REACTIONS (5)
  - Pyrexia [Recovered/Resolved]
  - Pollakiuria [Unknown]
  - Strangury [Unknown]
  - Respiratory tract infection [Unknown]
  - Urinary tract infection [Unknown]
